APPROVED DRUG PRODUCT: EPIDIOLEX
Active Ingredient: CANNABIDIOL
Strength: 100MG/ML
Dosage Form/Route: SOLUTION;ORAL
Application: N210365 | Product #001
Applicant: JAZZ PHARMACEUTICALS RESEARCH UK LTD
Approved: Sep 28, 2018 | RLD: Yes | RS: Yes | Type: RX

PATENTS:
Patent 10111840 | Expires: Jun 17, 2035
Patent 10137095 | Expires: Jun 17, 2035
Patent 10111840 | Expires: Jun 17, 2035
Patent 11633369 | Expires: Jun 17, 2035
Patent 11633369 | Expires: Jun 17, 2035
Patent 11633369 | Expires: Jun 17, 2035
Patent 10603288 | Expires: Jun 17, 2035
Patent 10603288 | Expires: Jun 17, 2035
Patent 10603288 | Expires: Jun 17, 2035
Patent 10603288 | Expires: Jun 17, 2035
Patent 11207292 | Expires: Apr 26, 2039
Patent 11207292 | Expires: Apr 26, 2039
Patent 11207292 | Expires: Apr 26, 2039
Patent 11357741 | Expires: Jun 17, 2035
Patent 12102619 | Expires: Mar 1, 2041
Patent 10709671 | Expires: Jun 17, 2035
Patent 10709674 | Expires: Jun 17, 2035
Patent 10709674 | Expires: Jun 17, 2035
Patent 9956183 | Expires: Jun 17, 2035
Patent 9956184 | Expires: Jun 17, 2035
Patent 11963937 | Expires: Jun 17, 2035
Patent 11963937 | Expires: Jun 17, 2035
Patent 9956185 | Expires: Jun 17, 2035
Patent 12064399 | Expires: Jun 17, 2035
Patent 12064399 | Expires: Jun 17, 2035
Patent 10137095 | Expires: Jun 17, 2035
Patent 11766411 | Expires: Jun 17, 2035
Patent 11065209 | Expires: Oct 13, 2035
Patent 11160795 | Expires: Mar 1, 2041
Patent 11154516 | Expires: Jun 17, 2035
Patent 11154516 | Expires: Jun 17, 2035
Patent 10849860 | Expires: Jun 17, 2035
Patent 10849860 | Expires: Jun 17, 2035
Patent 11311498 | Expires: Jun 17, 2035
Patent 11311498 | Expires: Jun 17, 2035
Patent 10966939 | Expires: Jun 17, 2035
Patent 10918608 | Expires: Oct 13, 2035
Patent 10918608 | Expires: Oct 13, 2035
Patent 10918608 | Expires: Oct 13, 2035
Patent 10966939 | Expires: Jun 17, 2035
Patent 11446258 | Expires: Jun 17, 2035
Patent 11446258 | Expires: Jun 17, 2035
Patent 11446258 | Expires: Jun 17, 2035
Patent 11406623 | Expires: Mar 1, 2041
Patent 11400055 | Expires: Oct 13, 2035
Patent 11096905 | Expires: Oct 13, 2035
Patent 11096905 | Expires: Oct 13, 2035
Patent 11865102 | Expires: Apr 26, 2039
Patent 11701330 | Expires: Jun 17, 2035
Patent 11701330 | Expires: Jun 17, 2035
Patent 11865102 | Expires: Apr 26, 2039
Patent 11865102 | Expires: Apr 26, 2039
Patent 10709673 | Expires: Jun 17, 2035
Patent 9956186 | Expires: Jun 17, 2035
Patent 10092525 | Expires: Jun 17, 2035
Patent 9956183 | Expires: Jun 17, 2035
Patent 9949937 | Expires: Jun 17, 2035

EXCLUSIVITY:
Code: M-270 | Date: Oct 20, 2026
Code: ODE-326 | Date: Jul 31, 2027
Code: ODE-332 | Date: Jul 31, 2027